FAERS Safety Report 5482037-7 (Version None)
Quarter: 2007Q4

REPORT INFORMATION
  Report Type: 
  Country: None (occurrence: None)
  Receive Date: 20071004
  Receipt Date: 20070920
  Transmission Date: 20080405
  Serious: Yes (Death, Life-Threatening)
  Sender: FDA-Public Use
  Company Number: 2007RR-09207

PATIENT
  Age: 32 Year
  Sex: Male

DRUGS (6)
  1. ENALAPRIL MALEATE [Suspect]
     Indication: HYPERTENSION
     Dosage: ORAL
     Route: 048
  2. AMLODIPINE RANBAXY 10 MG, GELULE (AMLODIPINE BESILATE) [Concomitant]
  3. INSULIN [Concomitant]
  4. METHYLPREDNISOLONE [Concomitant]
  5. ACICLOVIR 200 MG TABLETS (ACYCLOVIR) [Concomitant]
  6. PHENYTOIN [Concomitant]

REACTIONS (12)
  - ALBUMIN URINE PRESENT [None]
  - BLOOD ALBUMIN DECREASED [None]
  - BLOOD CREATININE INCREASED [None]
  - BLOOD LACTATE DEHYDROGENASE INCREASED [None]
  - BLOOD UREA INCREASED [None]
  - BRAIN HERNIATION [None]
  - BRONCHOPNEUMONIA [None]
  - CEREBRAL INFARCTION [None]
  - HYPERTENSION [None]
  - LEFT VENTRICULAR HYPERTROPHY [None]
  - LEUKOENCEPHALOMYELITIS [None]
  - VASCULITIS [None]
